FAERS Safety Report 16044496 (Version 1)
Quarter: 2019Q1

REPORT INFORMATION
  Report Type: Other
  Country: IT (occurrence: IT)
  Receive Date: 20190306
  Receipt Date: 20190306
  Transmission Date: 20190418
  Serious: Yes (Other)
  Sender: FDA-Public Use
  Company Number: IT-CELLTRION INC.-2019IT019161

PATIENT

DRUGS (3)
  1. MEDROL [Concomitant]
     Active Substance: METHYLPREDNISOLONE
     Indication: GRANULOMATOSIS WITH POLYANGIITIS
     Dosage: 4 MG, 1 PER DAY
     Route: 048
     Dates: start: 20160101
  2. LEFLUNOMIDE. [Concomitant]
     Active Substance: LEFLUNOMIDE
     Indication: GRANULOMATOSIS WITH POLYANGIITIS
     Dosage: 20 MG, 1 PER DAY
     Route: 048
     Dates: start: 20160101
  3. TRUXIMA [Suspect]
     Active Substance: RITUXIMAB-ABBS
     Indication: GRANULOMATOSIS WITH POLYANGIITIS
     Dosage: 1000 MG, 1 PER CYCLE
     Route: 042

REACTIONS (4)
  - Angioedema [Recovered/Resolved]
  - Pruritus [Recovered/Resolved]
  - Oedema peripheral [Recovered/Resolved]
  - Erythema [Recovered/Resolved]

NARRATIVE: CASE EVENT DATE: 20190128
